FAERS Safety Report 10361167 (Version 1)
Quarter: 2014Q3

REPORT INFORMATION
  Report Type: Spontaneous
  Country: IN (occurrence: IN)
  Receive Date: 20140804
  Receipt Date: 20140804
  Transmission Date: 20150326
  Serious: Yes (Other)
  Sender: FDA-Public Use
  Company Number: IN-MYLAN-2014S1017775

PATIENT

DRUGS (2)
  1. VALPROATE [Suspect]
     Active Substance: VALPROATE SODIUM
     Indication: CONVULSION
     Dosage: UNK
     Route: 065
  2. TOPIRAMATE. [Interacting]
     Active Substance: TOPIRAMATE
     Indication: CONVULSION
     Dosage: UNK
     Route: 065

REACTIONS (11)
  - Lethargy [None]
  - Drug interaction [Recovered/Resolved]
  - Blood lactic acid increased [None]
  - Respiratory disorder [None]
  - Lactate pyruvate ratio increased [None]
  - Ammonia increased [None]
  - Convulsion [None]
  - Amino acid level increased [None]
  - Metabolic disorder [Recovered/Resolved]
  - Skin odour abnormal [None]
  - Somnolence [None]
